FAERS Safety Report 15202906 (Version 1)
Quarter: 2018Q3

REPORT INFORMATION
  Report Type: Spontaneous
  Country: ZA (occurrence: ZA)
  Receive Date: 20180726
  Receipt Date: 20180726
  Transmission Date: 20181010
  Serious: Yes (Death, Other)
  Sender: FDA-Public Use
  Company Number: PHHY2018ZA055059

PATIENT
  Age: 39 Year
  Sex: Female

DRUGS (11)
  1. LINEZOLID. [Suspect]
     Active Substance: LINEZOLID
     Indication: TUBERCULOSIS
     Dosage: 600 MG, QD
     Route: 048
     Dates: start: 20180621, end: 20180702
  2. LOSEC [Concomitant]
     Active Substance: OMEPRAZOLE
     Dosage: UNK
     Route: 065
     Dates: start: 20180630
  3. CLOFAZIMINE [Suspect]
     Active Substance: CLOFAZIMINE
     Indication: TUBERCULOSIS
     Dosage: 100 MG, QD
     Route: 048
     Dates: start: 20180502, end: 20180702
  4. BEDAQUILINE [Suspect]
     Active Substance: BEDAQUILINE
     Indication: TUBERCULOSIS
     Dosage: 200 MG, TIW
     Route: 048
     Dates: start: 20180502, end: 20180702
  5. P.A.S. SODIUM [Suspect]
     Active Substance: AMINOSALICYLATE SODIUM
     Indication: TUBERCULOSIS
     Dosage: 8 MG, QD
     Route: 048
     Dates: start: 20180502, end: 20180702
  6. PYRIDOXINE [Concomitant]
     Active Substance: PYRIDOXINE
     Indication: PRODUCT USED FOR UNKNOWN INDICATION
     Route: 065
  7. LOSEC [Concomitant]
     Active Substance: OMEPRAZOLE
     Indication: PRODUCT USED FOR UNKNOWN INDICATION
     Dosage: UNK
     Route: 065
     Dates: start: 20180621, end: 20180628
  8. PYRAZINAMIDE SANDOZ [Suspect]
     Active Substance: PYRAZINAMIDE
     Indication: TUBERCULOSIS
     Dosage: 1.5 MG, QD
     Route: 048
     Dates: start: 20180502, end: 20180702
  9. DELAMANID [Suspect]
     Active Substance: DELAMANID
     Indication: TUBERCULOSIS
     Dosage: 100 MG, BID
     Route: 048
     Dates: start: 20180612, end: 20180702
  10. TERIZIDONE [Suspect]
     Active Substance: TERIZIDONE
     Indication: TUBERCULOSIS
     Dosage: 500 MG, QD
     Route: 048
     Dates: start: 20180621, end: 20180702
  11. PREGAMAL [Concomitant]
     Indication: PRODUCT USED FOR UNKNOWN INDICATION
     Route: 065

REACTIONS (22)
  - Gastritis [Fatal]
  - Blood bicarbonate decreased [Unknown]
  - Blood calcium decreased [Unknown]
  - Blood thyroid stimulating hormone increased [Unknown]
  - Renal impairment [Fatal]
  - Blood creatinine increased [Unknown]
  - Blood albumin decreased [Unknown]
  - Restlessness [Unknown]
  - Acidosis [Fatal]
  - Gamma-glutamyltransferase increased [Unknown]
  - Haemoglobin decreased [Unknown]
  - Abdominal pain upper [Unknown]
  - Blood phosphorus increased [Unknown]
  - Dyspnoea [Fatal]
  - Hypoglycaemia [Fatal]
  - Blood urea increased [Unknown]
  - Thyroxine free decreased [Unknown]
  - Alanine aminotransferase decreased [Unknown]
  - Blood chloride increased [Unknown]
  - Blood potassium decreased [Unknown]
  - Herbal toxicity [Fatal]
  - Blood pressure abnormal [Unknown]

NARRATIVE: CASE EVENT DATE: 20180626
